FAERS Safety Report 4318406-8 (Version None)
Quarter: 2004Q1

REPORT INFORMATION
  Report Type: 
  Country: None (occurrence: None)
  Receive Date: 20040315
  Receipt Date: 20040227
  Transmission Date: 20041129
  Serious: Yes (Death)
  Sender: FDA-Public Use
  Company Number: 2004AP00989

PATIENT
  Age: 65 Year
  Sex: Male

DRUGS (13)
  1. IRESSA [Suspect]
     Indication: ADENOCARCINOMA
     Dosage: 250 MG DAILY PO
     Route: 048
     Dates: start: 20031125, end: 20040104
  2. IRESSA [Suspect]
     Indication: NON-SMALL CELL LUNG CANCER RECURRENT
     Dosage: 250 MG DAILY PO
     Route: 048
     Dates: start: 20031125, end: 20040104
  3. WARFARIN SODIUM [Concomitant]
  4. PLETAL [Concomitant]
  5. PENFILL [Concomitant]
  6. CLARITHROMYCIN [Concomitant]
  7. NEUZYM [Concomitant]
  8. CLARITH [Concomitant]
  9. NO MATCH [Concomitant]
  10. MS CONTIN [Concomitant]
  11. NAUZELIN [Concomitant]
  12. PRIMPERAN INJ [Concomitant]
  13. NOVAMIN [Concomitant]

REACTIONS (3)
  - ASTHENIA [None]
  - CONDITION AGGRAVATED [None]
  - NON-SMALL CELL LUNG CANCER RECURRENT [None]
